FAERS Safety Report 13111205 (Version 1)
Quarter: 2017Q1

REPORT INFORMATION
  Report Type: Spontaneous
  Country: NL (occurrence: NL)
  Receive Date: 20170112
  Receipt Date: 20170112
  Transmission Date: 20170428
  Serious: Yes (Other)
  Sender: FDA-Public Use
  Company Number: NL-PFIZER INC-15015

PATIENT
  Age: 56 Year
  Sex: Male

DRUGS (5)
  1. BUPIVACAINE HCL [Suspect]
     Active Substance: BUPIVACAINE HYDROCHLORIDE
     Dosage: 8 ML, 0.125%, FREQ: Q1HR
     Route: 008
  2. SUFENTANIL [Concomitant]
     Active Substance: SUFENTANIL
     Indication: ANAESTHESIA
     Dosage: 7 ML, (1MCG/ML), FREQ: Q1HR
     Route: 008
  3. SUFENTANIL [Concomitant]
     Active Substance: SUFENTANIL
     Dosage: 8 ML, (1MCG/ML), FREQ: Q1HR
     Route: 008
  4. PROPOFOL. [Concomitant]
     Active Substance: PROPOFOL
     Indication: ANAESTHESIA
     Dosage: 2.5 MG/KG, FREQ: Q1HR
     Route: 065
  5. BUPIVACAINE HCL [Suspect]
     Active Substance: BUPIVACAINE HYDROCHLORIDE
     Indication: ANAESTHESIA
     Dosage: 7 ML, 0.25%, FREQ: Q1HR
     Route: 008

REACTIONS (1)
  - Brugada syndrome [Recovered/Resolved]
